FAERS Safety Report 9771797 (Version 1)
Quarter: 2013Q4

REPORT INFORMATION
  Report Type: Spontaneous
  Country: IN (occurrence: IN)
  Receive Date: 20131219
  Receipt Date: 20131219
  Transmission Date: 20140711
  Serious: Yes (Hospitalization)
  Sender: FDA-Public Use
  Company Number: IN-SUN PHARMACEUTICAL INDUSTRIES LTD-2013SUN05214

PATIENT
  Age: 7 Year
  Sex: Female

DRUGS (6)
  1. DOXORUBICIN HYDROCHLORIDE INJECTION 2MG/ML [Suspect]
     Indication: HODGKIN^S DISEASE
     Route: 065
  2. DOXORUBICIN HYDROCHLORIDE INJECTION 2MG/ML [Suspect]
     Route: 065
  3. BLEOMYCIN [Concomitant]
     Indication: HODGKIN^S DISEASE
     Route: 065
  4. BLEOMYCIN [Concomitant]
     Route: 065
  5. VINBLASTINE [Concomitant]
     Indication: HODGKIN^S DISEASE
  6. DACARBAZINE [Concomitant]
     Indication: HODGKIN^S DISEASE

REACTIONS (3)
  - Cardiogenic shock [Recovering/Resolving]
  - Cardiac failure congestive [Recovering/Resolving]
  - Cardiac arrest [Recovering/Resolving]
